FAERS Safety Report 7377465-9 (Version None)
Quarter: 2011Q1

REPORT INFORMATION
  Report Type: 
  Country: None (occurrence: None)
  Receive Date: 20110328
  Receipt Date: 20110314
  Transmission Date: 20110831
  Serious: Yes (Other)
  Sender: FDA-Public Use
  Company Number: PHHY2011DE10700

PATIENT
  Sex: Female

DRUGS (10)
  1. BISOPROLOL COMP [Concomitant]
     Dosage: 1 DF, QD
  2. FORADIL [Concomitant]
  3. FURSEMID [Concomitant]
     Dosage: 1 DF, QD
  4. LEVOTHYROXINE SODIUM [Concomitant]
     Dosage: 1 DF, QD
  5. SIOFOR [Concomitant]
     Dosage: 1 DF, BID
  6. RASILEZ [Suspect]
     Indication: HYPERTENSION
     Dosage: 150 MG, QD
     Route: 048
     Dates: start: 20110122, end: 20110125
  7. RAMIPRIL [Concomitant]
     Dosage: 1 DF, BID
  8. ASPIRIN [Concomitant]
     Dosage: 1 DF, QD
  9. AMLODIPINE BESYLATE [Concomitant]
     Dosage: 1 DF, QD
  10. GLIMEPIRIDE [Concomitant]
     Dosage: 1 DF, QD

REACTIONS (1)
  - DYSPNOEA [None]
